FAERS Safety Report 13814230 (Version 1)
Quarter: 2017Q3

REPORT INFORMATION
  Report Type: Report from Study
  Country: US (occurrence: US)
  Receive Date: 20170731
  Receipt Date: 20170731
  Transmission Date: 20171127
  Serious: Yes (Hospitalization)
  Sender: FDA-Public Use
  Company Number: PHEH2017US022490

PATIENT
  Sex: Female

DRUGS (1)
  1. COSENTYX [Suspect]
     Active Substance: SECUKINUMAB
     Indication: PRODUCT USED FOR UNKNOWN INDICATION
     Dosage: 300 MG, QW
     Route: 065

REACTIONS (6)
  - Herpes zoster [Unknown]
  - Back pain [Unknown]
  - Photosensitivity reaction [Unknown]
  - Neck pain [Unknown]
  - Meningitis viral [Unknown]
  - Immunodeficiency [Unknown]
